FAERS Safety Report 10289633 (Version 5)
Quarter: 2015Q1

REPORT INFORMATION
  Report Type: Report from Study
  Country: CA (occurrence: CA)
  Receive Date: 20140710
  Receipt Date: 20150213
  Transmission Date: 20150720
  Serious: Yes (Hospitalization)
  Sender: FDA-Public Use
  Company Number: CA-ROCHE-1396195

PATIENT
  Age: 51 Year
  Sex: Female
  Weight: 71.7 kg

DRUGS (8)
  1. TYLENOL EXTRA STRENGTH [Concomitant]
     Active Substance: ACETAMINOPHEN
     Route: 065
     Dates: start: 20140129
  2. COLACE [Concomitant]
     Active Substance: DOCUSATE SODIUM
     Route: 065
     Dates: start: 20140129
  3. OXAZEPAM. [Concomitant]
     Active Substance: OXAZEPAM
     Route: 065
     Dates: start: 2010
  4. TYLENOL #2 (CANADA) [Concomitant]
     Dosage: ONE AS NEEDED
     Route: 065
     Dates: start: 20140129
  5. ATIVAN [Concomitant]
     Active Substance: LORAZEPAM
     Route: 065
     Dates: start: 20130208
  6. TYLENOL EXTRA STRENGTH [Concomitant]
     Active Substance: ACETAMINOPHEN
     Route: 065
     Dates: start: 20131105
  7. TRASTUZUMAB EMTANSINE [Suspect]
     Active Substance: ADO-TRASTUZUMAB EMTANSINE
     Indication: HER-2 POSITIVE BREAST CANCER
     Dosage: LAST DOSE PRIOR TO SAE 22/APR/2014
     Route: 042
     Dates: start: 20130807
  8. ALEVE [Concomitant]
     Active Substance: NAPROXEN SODIUM
     Dosage: AS NEEDED
     Route: 065
     Dates: start: 20130922

REACTIONS (1)
  - Colitis [Recovered/Resolved]

NARRATIVE: CASE EVENT DATE: 20140424
